FAERS Safety Report 14666707 (Version 3)
Quarter: 2019Q2

REPORT INFORMATION
  Report Type: Spontaneous
  Country: ME (occurrence: ME)
  Receive Date: 20180322
  Receipt Date: 20190612
  Transmission Date: 20190711
  Serious: Yes (Other)
  Sender: FDA-Public Use
  Company Number: ME-SUN PHARMACEUTICAL INDUSTRIES LTD-2018RR-167685

PATIENT
  Age: 56 Year
  Sex: Female

DRUGS (1)
  1. DICLOFENAC [Suspect]
     Active Substance: DICLOFENAC
     Indication: BACK PAIN
     Dosage: 200 MG, DAILY
     Route: 065

REACTIONS (1)
  - Gastrointestinal disorder [Unknown]
